FAERS Safety Report 13309669 (Version 1)
Quarter: 2017Q1

REPORT INFORMATION
  Report Type: Spontaneous
  Country: CN (occurrence: CN)
  Receive Date: 20170309
  Receipt Date: 20170309
  Transmission Date: 20170428
  Serious: Yes (Other)
  Sender: FDA-Public Use
  Company Number: CN-PFIZER INC-2017097732

PATIENT
  Age: 65 Year
  Sex: Female
  Weight: 56 kg

DRUGS (2)
  1. ENALAPRIL MALEATE. [Suspect]
     Active Substance: ENALAPRIL MALEATE
     Indication: HYPERTENSION
     Dosage: 1 DF, 1X/DAY
     Route: 048
     Dates: start: 20170114, end: 20170117
  2. LIPITOR [Suspect]
     Active Substance: ATORVASTATIN CALCIUM
     Indication: HYPERGLYCAEMIA
     Dosage: 1 DF, 1X/DAY
     Route: 048
     Dates: start: 20170114, end: 20170117

REACTIONS (3)
  - Angioedema [Recovering/Resolving]
  - Hypotension [Recovered/Resolved]
  - Dysphonia [Recovering/Resolving]

NARRATIVE: CASE EVENT DATE: 20170117
